FAERS Safety Report 5088081-6 (Version None)
Quarter: 2006Q3

REPORT INFORMATION
  Report Type: 
  Country: None (occurrence: None)
  Receive Date: 20060823
  Receipt Date: 20060823
  Transmission Date: 20061208
  Serious: Yes (Other)
  Sender: FDA-Public Use
  Company Number: None

PATIENT
  Age: 75 Year
  Sex: Male
  Weight: 54.4316 kg

DRUGS (2)
  1. MORPHINE [Suspect]
     Indication: PAIN
     Dosage: 10 MG PO Q 2 HR PRN
     Route: 048
  2. METHADONE HCL [Suspect]
     Indication: BREAKTHROUGH PAIN
     Dosage: PO 5 MG Q 12 HR
     Route: 048

REACTIONS (3)
  - CONFUSIONAL STATE [None]
  - FALL [None]
  - HALLUCINATION [None]
